FAERS Safety Report 12442509 (Version 7)
Quarter: 2018Q3

REPORT INFORMATION
  Report Type: Spontaneous
  Country: US (occurrence: US)
  Receive Date: 20160607
  Receipt Date: 20180813
  Transmission Date: 20181010
  Serious: Yes (Other)
  Sender: FDA-Public Use
  Company Number: US-009507513-1606USA002458

PATIENT
  Sex: Female
  Weight: 58.95 kg

DRUGS (2)
  1. NUVARING [Suspect]
     Active Substance: ETHINYL ESTRADIOL\ETONOGESTREL
     Indication: CONTRACEPTION
     Dosage: INSERT FOR 3 WEEKS, REMOVE FOR ONE WEEK
     Route: 067
     Dates: start: 201105, end: 20140606
  2. NUVARING [Suspect]
     Active Substance: ETHINYL ESTRADIOL\ETONOGESTREL
     Indication: MENSTRUAL DISORDER

REACTIONS (14)
  - Depression [Not Recovered/Not Resolved]
  - Pleural effusion [Unknown]
  - Limb mass [Unknown]
  - Facial operation [Unknown]
  - Vascular pain [Unknown]
  - Pulmonary embolism [Unknown]
  - Pain [Unknown]
  - Anxiety [Recovered/Resolved]
  - Swelling [Unknown]
  - Depression [Recovered/Resolved]
  - Borderline personality disorder [Unknown]
  - Complex regional pain syndrome [Not Recovered/Not Resolved]
  - Anxiety [Not Recovered/Not Resolved]
  - Product use in unapproved indication [Unknown]

NARRATIVE: CASE EVENT DATE: 2011
